FAERS Safety Report 5147441-5 (Version None)
Quarter: 2006Q4

REPORT INFORMATION
  Report Type: 
  Country: None (occurrence: None)
  Receive Date: 20061106
  Receipt Date: 20061024
  Transmission Date: 20070319
  Serious: Yes (Other)
  Sender: FDA-Public Use
  Company Number: 2006BI011680

PATIENT
  Age: 48 Year
  Sex: Female

DRUGS (8)
  1. AVONEX [Suspect]
     Indication: MULTIPLE SCLEROSIS
     Dosage: 30 UG; QW; IM
     Route: 030
     Dates: start: 20000301, end: 20031001
  2. AVONEX [Suspect]
     Indication: MULTIPLE SCLEROSIS
     Dosage: 30 UG; QW; IM
     Route: 030
     Dates: start: 20031001
  3. AMANTADINE HCL [Concomitant]
  4. COZAAR [Concomitant]
  5. ANTIVERT [Concomitant]
  6. ALAVERT [Concomitant]
  7. LASIX [Concomitant]
  8. CYMBALTA [Concomitant]

REACTIONS (2)
  - BLOOD ALKALINE PHOSPHATASE INCREASED [None]
  - HEPATIC NEOPLASM MALIGNANT [None]
